FAERS Safety Report 9809151 (Version 1)
Quarter: 2014Q1

REPORT INFORMATION
  Report Type: Spontaneous
  Country: US (occurrence: US)
  Receive Date: 20140110
  Receipt Date: 20140110
  Transmission Date: 20141002
  Serious: Yes (Death)
  Sender: FDA-Public Use
  Company Number: PHEH2014US000833

PATIENT
  Sex: Male

DRUGS (11)
  1. ZOMETA [Suspect]
     Dosage: UNK UKN, UNK
  2. TEGRETOL [Suspect]
     Dosage: UNK UKN, UNK
  3. PERCOCET [Concomitant]
     Dosage: UNK UKN, UNK
  4. PREDNISONE [Concomitant]
     Dosage: UNK UKN, UNK
  5. CALCIUM [Concomitant]
     Dosage: UNK UKN, UNK
  6. OXYCODONE [Concomitant]
     Dosage: UNK UKN, UNK
  7. COLACE [Concomitant]
     Dosage: UNK UKN, UNK
  8. FLEXERIL [Concomitant]
     Dosage: UNK UKN, UNK
  9. DURAGESIC [Concomitant]
     Dosage: UNK UKN, UNK
  10. COMPAZINE [Concomitant]
     Dosage: UNK UKN, UNK
  11. CLARITIN-D [Concomitant]
     Dosage: UNK UKN, UNK

REACTIONS (1)
  - Death [Fatal]
